FAERS Safety Report 7459243-5 (Version None)
Quarter: 2011Q2

REPORT INFORMATION
  Report Type: 
  Country: None (occurrence: None)
  Receive Date: 20110503
  Receipt Date: 20110503
  Transmission Date: 20111010
  Serious: Yes (Hospitalization)
  Sender: FDA-Public Use
  Company Number: None

PATIENT
  Age: 60 Year
  Sex: Female
  Weight: 82 kg

DRUGS (2)
  1. ASPIRIN [Suspect]
     Indication: PAIN
     Dosage: 81 MG EVERY DAY PO
     Route: 048
     Dates: start: 20110101, end: 20110224
  2. INDOMETHACIN [Suspect]
     Indication: PAIN
     Dosage: 25 MG EVERY DAY PO
     Route: 048
     Dates: start: 20110101, end: 20110224

REACTIONS (2)
  - GASTRIC POLYPS [None]
  - DIZZINESS [None]
